FAERS Safety Report 4472989-6 (Version None)
Quarter: 2004Q4

REPORT INFORMATION
  Report Type: 
  Country: None (occurrence: None)
  Receive Date: 20041013
  Receipt Date: 20041001
  Transmission Date: 20050328
  Serious: Yes (Life-Threatening, Hospitalization)
  Sender: FDA-Public Use
  Company Number: US-MERCK-0410USA00163

PATIENT
  Age: 57 Year
  Sex: Female

DRUGS (6)
  1. [THERAPY UNSPECIFIED] [Concomitant]
     Route: 065
  2. ASPIRIN [Concomitant]
     Route: 065
  3. CALCIUM (UNSPECIFIED) [Concomitant]
     Route: 065
  4. NEXIUM [Concomitant]
     Route: 065
  5. VIOXX [Suspect]
     Indication: OSTEOARTHRITIS
     Route: 048
     Dates: start: 20001005, end: 20040501
  6. VIOXX [Suspect]
     Route: 048
     Dates: start: 20040505, end: 20040930

REACTIONS (8)
  - AMNESIA [None]
  - CARDIAC DISORDER [None]
  - CHEST PAIN [None]
  - CONTUSION [None]
  - EATING DISORDER [None]
  - MYOCARDIAL INFARCTION [None]
  - STRESS SYMPTOMS [None]
  - WEIGHT DECREASED [None]
